FAERS Safety Report 9340170 (Version 1)
Quarter: 2013Q2

REPORT INFORMATION
  Report Type: Other
  Country: US (occurrence: US)
  Receive Date: 20130610
  Receipt Date: 20130610
  Transmission Date: 20140414
  Serious: No
  Sender: FDA-Public Use
  Company Number: US-LEHIGH_VALLEY-USA-2012POI058000058

PATIENT
  Age: 61 Year
  Sex: Female

DRUGS (1)
  1. OXYCODONE HCL CAPSULES [Suspect]
     Dates: start: 200606, end: 200606

REACTIONS (1)
  - Rash pruritic [Recovered/Resolved]
